FAERS Safety Report 11434009 (Version 1)
Quarter: 2015Q3

REPORT INFORMATION
  Report Type: Report from Study
  Country: US (occurrence: US)
  Receive Date: 20150831
  Receipt Date: 20150831
  Transmission Date: 20151125
  Serious: No
  Sender: FDA-Public Use
  Company Number: PHEH2014US023573

PATIENT
  Age: 37 Year
  Sex: Male
  Weight: 99.77 kg

DRUGS (1)
  1. GILENYA [Suspect]
     Active Substance: FINGOLIMOD HYDROCHLORIDE
     Indication: MULTIPLE SCLEROSIS
     Dosage: 0.5 MG, QD
     Route: 048
     Dates: start: 20141121

REACTIONS (10)
  - Amnesia [Recovering/Resolving]
  - Drug ineffective [Unknown]
  - Somnolence [Unknown]
  - Fatigue [Recovered/Resolved]
  - Dizziness [Recovering/Resolving]
  - Lethargy [Not Recovered/Not Resolved]
  - Memory impairment [Recovering/Resolving]
  - Loss of consciousness [Recovering/Resolving]
  - Headache [Recovered/Resolved]
  - Multiple sclerosis relapse [Recovering/Resolving]

NARRATIVE: CASE EVENT DATE: 20141121
